FAERS Safety Report 7098045 (Version 5)
Quarter: 2015Q2

REPORT INFORMATION
  Report Type: Report from Study
  Country: US (occurrence: US)
  Receive Date: 20090724
  Receipt Date: 20150625
  Transmission Date: 20150821
  Serious: Yes (Hospitalization)
  Sender: FDA-Public Use
  Company Number: 2008BI008703

PATIENT
  Age: 32 Year
  Sex: Female
  Weight: 97 kg

DRUGS (3)
  1. TYSABRI [Suspect]
     Active Substance: NATALIZUMAB
     Indication: MULTIPLE SCLEROSIS
     Route: 042
     Dates: start: 20061128, end: 20091106
  2. NORCO [Concomitant]
     Active Substance: ACETAMINOPHEN\HYDROCODONE BITARTRATE
     Indication: PAIN
  3. BENADRYL [Concomitant]
     Active Substance: DIPHENHYDRAMINE HYDROCHLORIDE
     Indication: PREMEDICATION

REACTIONS (18)
  - Vasodilatation [Recovered/Resolved]
  - Sensory loss [Recovered/Resolved]
  - Multiple sclerosis relapse [Recovered/Resolved]
  - Adverse drug reaction [Recovered/Resolved]
  - Anaphylactic reaction [Recovered/Resolved]
  - Weight increased [Not Recovered/Not Resolved]
  - Secondary progressive multiple sclerosis [Not Recovered/Not Resolved]
  - Vasoconstriction [Recovered/Resolved]
  - Adverse event [Unknown]
  - Mobility decreased [Not Recovered/Not Resolved]
  - Speech disorder [Recovered/Resolved]
  - Migraine [Recovered/Resolved]
  - Vision blurred [Recovered/Resolved]
  - Hypersensitivity [Recovered/Resolved]
  - Drug specific antibody present [Recovered/Resolved]
  - Disorientation [Recovered/Resolved]
  - Fatigue [Not Recovered/Not Resolved]
  - Influenza [Recovered/Resolved]

NARRATIVE: CASE EVENT DATE: 200611
